FAERS Safety Report 21815036 (Version 1)
Quarter: 2023Q1

REPORT INFORMATION
  Report Type: Spontaneous
  Country: US (occurrence: US)
  Receive Date: 20230104
  Receipt Date: 20230104
  Transmission Date: 20230418
  Serious: Yes (Other)
  Sender: FDA-Public Use
  Company Number: US-STRIDES ARCOLAB LIMITED-2022SP014166

PATIENT
  Age: 30 Year
  Sex: Male

DRUGS (35)
  1. DISULFIRAM [Suspect]
     Active Substance: DISULFIRAM
     Indication: Lyme disease
     Dosage: 125 MILLIGRAM, THRICE  A WEEK
     Route: 065
     Dates: start: 201911
  2. DISULFIRAM [Suspect]
     Active Substance: DISULFIRAM
     Dosage: 62.5 MILLIGRAM PER WEEK
     Route: 065
  3. DISULFIRAM [Suspect]
     Active Substance: DISULFIRAM
     Dosage: 62.5 MILLIGRAM PER WEEK
     Route: 065
     Dates: start: 202103
  4. DISULFIRAM [Suspect]
     Active Substance: DISULFIRAM
     Dosage: 62.5 MILLIGRAM PER DAY OVER THE NEXT 2 MONTHS
     Route: 065
     Dates: start: 2021
  5. NYSTATIN [Suspect]
     Active Substance: NYSTATIN
     Indication: Lyme disease
     Dosage: UNK
     Route: 065
  6. DOXYCYCLINE [Suspect]
     Active Substance: DOXYCYCLINE
     Indication: Lyme disease
     Dosage: 150 MILLIGRAM
     Route: 048
  7. DOXYCYCLINE [Suspect]
     Active Substance: DOXYCYCLINE
     Dosage: UNK
     Route: 065
  8. DAPSONE [Suspect]
     Active Substance: DAPSONE
     Indication: Lyme disease
     Dosage: 50 MILLIGRAM PER DAY
     Route: 048
  9. DAPSONE [Suspect]
     Active Substance: DAPSONE
     Dosage: 100 MILLIGRAM PER DAY
     Route: 065
     Dates: start: 202002
  10. DAPSONE [Suspect]
     Active Substance: DAPSONE
     Dosage: 50 MILLIGRAM PER DAY
     Route: 065
  11. DAPSONE [Suspect]
     Active Substance: DAPSONE
     Dosage: 200 MILLIGRAM, BID
     Route: 048
  12. DAPSONE [Suspect]
     Active Substance: DAPSONE
     Dosage: UNK (HIGH DOSE DAPSONE)
     Route: 065
  13. RIFAMPIN [Suspect]
     Active Substance: RIFAMPIN
     Indication: Lyme disease
     Dosage: 300 MILLIGRAM
     Route: 048
  14. RIFAMPIN [Suspect]
     Active Substance: RIFAMPIN
     Dosage: UNK
     Route: 065
  15. PYRAZINAMIDE [Suspect]
     Active Substance: PYRAZINAMIDE
     Indication: Lyme disease
     Dosage: 2000 MILLIGRAM PER DAY
     Route: 065
  16. PYRAZINAMIDE [Suspect]
     Active Substance: PYRAZINAMIDE
     Dosage: UNK
     Route: 065
  17. METHYLENE BLUE [Suspect]
     Active Substance: METHYLENE BLUE
     Indication: Lyme disease
     Dosage: 50 MILLIGRAM, BID
     Route: 048
  18. METHYLENE BLUE [Suspect]
     Active Substance: METHYLENE BLUE
     Dosage: UNK
     Route: 065
  19. CEFUROXIME AXETIL [Suspect]
     Active Substance: CEFUROXIME AXETIL
     Indication: Lyme disease
     Dosage: UNK
     Route: 065
  20. BACTRIM [Suspect]
     Active Substance: SULFAMETHOXAZOLE\TRIMETHOPRIM
     Indication: Lyme disease
     Dosage: UNK
     Route: 065
  21. HYDROXYCHLOROQUINE [Suspect]
     Active Substance: HYDROXYCHLOROQUINE
     Indication: Lyme disease
     Dosage: UNK
     Route: 065
  22. NALTREXONE [Suspect]
     Active Substance: NALTREXONE
     Indication: Lyme disease
     Dosage: UNK
     Route: 065
  23. FOLIC ACID [Suspect]
     Active Substance: FOLIC ACID
     Indication: Lyme disease
     Dosage: UNK
     Route: 065
  24. ZITHROMAX [Concomitant]
     Active Substance: AZITHROMYCIN DIHYDRATE
     Indication: Lyme disease
     Dosage: 500 MILLIGRAM PER DAY
     Route: 065
  25. COBALAMIN [Concomitant]
     Active Substance: COBALAMIN
     Indication: Vitamin supplementation
     Dosage: UNK
     Route: 065
  26. PYRIDOXINE [Concomitant]
     Active Substance: PYRIDOXINE
     Indication: Vitamin supplementation
     Dosage: UNK
     Route: 065
  27. VENLAFAXINE [Concomitant]
     Active Substance: VENLAFAXINE HYDROCHLORIDE
     Indication: Anxiety
     Dosage: UNK
     Route: 065
  28. VENLAFAXINE [Concomitant]
     Active Substance: VENLAFAXINE HYDROCHLORIDE
     Indication: Depression
     Dosage: UNK (DOSE WAS DECREASED)
     Route: 065
  29. LIBRIUM [Concomitant]
     Active Substance: CHLORDIAZEPOXIDE HYDROCHLORIDE
     Indication: Anxiety
     Dosage: UNK
     Route: 065
  30. ABILIFY [Concomitant]
     Active Substance: ARIPIPRAZOLE
     Indication: Attention deficit hyperactivity disorder
     Dosage: UNK
     Route: 065
  31. CONCERTA [Concomitant]
     Active Substance: METHYLPHENIDATE HYDROCHLORIDE
     Indication: Attention deficit hyperactivity disorder
     Dosage: UNK
     Route: 065
  32. CLOMIPHENE [Concomitant]
     Active Substance: CLOMIPHENE
     Indication: Androgen deficiency
     Dosage: UNK
     Route: 065
  33. TESTOSTERONE [Concomitant]
     Active Substance: TESTOSTERONE
     Indication: Androgen deficiency
     Dosage: UNK
     Route: 065
  34. MONOLAURIN [GLYCERINE MONOLAURATE] [Concomitant]
     Indication: Lyme disease
     Dosage: UNK
     Route: 065
  35. BERBERINE [Concomitant]
     Active Substance: BERBERINE
     Indication: Lyme disease
     Dosage: UNK
     Route: 065

REACTIONS (3)
  - Drug ineffective for unapproved indication [Unknown]
  - Jarisch-Herxheimer reaction [Unknown]
  - Nausea [Unknown]

NARRATIVE: CASE EVENT DATE: 20191101
